FAERS Safety Report 13428715 (Version 2)
Quarter: 2017Q2

REPORT INFORMATION
  Report Type: Spontaneous
  Country: US (occurrence: US)
  Receive Date: 20170411
  Receipt Date: 20170505
  Transmission Date: 20170830
  Serious: Yes (Other)
  Sender: FDA-Public Use
  Company Number: US-BAYER-2017-069176

PATIENT
  Age: 18 Year
  Sex: Female
  Weight: 60.32 kg

DRUGS (1)
  1. SKYLA [Suspect]
     Active Substance: LEVONORGESTREL
     Indication: CONTRACEPTION
     Dosage: 14 MCG/24HR, CONT
     Route: 015
     Dates: start: 20170220, end: 20170403

REACTIONS (3)
  - Device dislocation [None]
  - Pelvic discomfort [None]
  - Dyspareunia [None]

NARRATIVE: CASE EVENT DATE: 2017
